FAERS Safety Report 18864552 (Version 1)
Quarter: 2021Q1

REPORT INFORMATION
  Report Type: Spontaneous
  Country: US (occurrence: US)
  Receive Date: 20210208
  Receipt Date: 20210208
  Transmission Date: 20210420
  Serious: Yes (Other)
  Sender: FDA-Public Use
  Company Number: US-OTSUKA-2021_003108

PATIENT

DRUGS (1)
  1. INQOVI [Suspect]
     Active Substance: CEDAZURIDINE\DECITABINE
     Indication: MYELODYSPLASTIC SYNDROME
     Dosage: 135 MG (35 MG OF DECITABINE AND 100 MG OF CEDAZURIDINE), QD (DAYS 1?5) OF EVERY 28 DAYS CYCLE
     Route: 065
     Dates: start: 20201229

REACTIONS (1)
  - Pancytopenia [Not Recovered/Not Resolved]
